FAERS Safety Report 24311027 (Version 1)
Quarter: 2024Q3

REPORT INFORMATION
  Report Type: Spontaneous
  Country: DE (occurrence: DE)
  Receive Date: 20240912
  Receipt Date: 20240912
  Transmission Date: 20241017
  Serious: Yes (Death, Life-Threatening, Congenital Anomaly, Other)
  Sender: TORRENT
  Company Number: None

PATIENT
  Sex: Male

DRUGS (4)
  1. SERTRALINE [Suspect]
     Active Substance: SERTRALINE HYDROCHLORIDE
     Indication: Product used for unknown indication
     Dosage: MOTHER DOSE: 150 [MG/D], 10/12/2022 TO 31/03/2023 FOR 111 DAYS
     Route: 064
  2. VERMOX [Suspect]
     Active Substance: MEBENDAZOLE
     Indication: Product used for unknown indication
     Dosage: MOTHER DOSE: APPLIED TWICE FOR 3 DAYS WITH 2 WEEKS IN BETWEEN
     Route: 064
  3. HEPARIN [Concomitant]
     Active Substance: HEPARIN SODIUM
     Indication: Product used for unknown indication
     Dosage: MOTHER DOSE: NO DETAILS KNOWN, 07/01/2023 TO 31/03/2023 FOR 83 DAY.
     Route: 064
  4. LEVOTHYROXINE SODIUM [Concomitant]
     Active Substance: LEVOTHYROXINE SODIUM
     Indication: Product used for unknown indication
     Dosage: MOTHER DOSE: 50UG/D/ 25 UG/D UNTIL GW 4 INCREASED 50 UG/D, 10-DEC-2022 TO 31-MAR-2023 FOR 111 DAYS
     Route: 064

REACTIONS (2)
  - Foetal megacystis [Fatal]
  - Foetal exposure during pregnancy [Fatal]
